FAERS Safety Report 5615426-8 (Version None)
Quarter: 2008Q1

REPORT INFORMATION
  Report Type: 
  Country: None (occurrence: None)
  Receive Date: 20080206
  Receipt Date: 20080201
  Transmission Date: 20080703
  Serious: Yes (Death)
  Sender: FDA-Public Use
  Company Number: PK-AVENTIS-200811108GDDC

PATIENT
  Age: 67 Year
  Sex: Female

DRUGS (2)
  1. LANTUS [Suspect]
     Route: 058
     Dates: start: 20070628, end: 20071120
  2. HUMULIN R [Concomitant]
     Dosage: DOSE: 12+0+12
     Route: 058
     Dates: end: 20071120

REACTIONS (1)
  - SILENT MYOCARDIAL INFARCTION [None]
